FAERS Safety Report 6368369-9 (Version None)
Quarter: 2009Q3

REPORT INFORMATION
  Report Type: 
  Country: None (occurrence: None)
  Receive Date: 20090909
  Receipt Date: 20080625
  Transmission Date: 20100115
  Serious: No
  Sender: FDA-Public Use
  Company Number: 002#2#2008-00536

PATIENT
  Sex: Female
  Weight: 86.1834 kg

DRUGS (7)
  1. ROTIGOTINE [Suspect]
     Indication: RESTLESS LEGS SYNDROME
     Dosage: SEE IMAGE
     Route: 062
     Dates: start: 20080101
  2. CRESTOR [Concomitant]
  3. RALOXIFENE HCL [Concomitant]
  4. PANTOPRAZOLE SODIUM [Concomitant]
  5. LEVOTHYROXINE SODIUM [Concomitant]
  6. LISINOPRIL [Concomitant]
  7. HYDROCHLOROTHIAZIDE [Concomitant]

REACTIONS (3)
  - HIP FRACTURE [None]
  - MACULAR DEGENERATION [None]
  - OFF LABEL USE [None]
